FAERS Safety Report 20290430 (Version 1)
Quarter: 2022Q1

REPORT INFORMATION
  Report Type: Spontaneous
  Country: ES (occurrence: ES)
  Receive Date: 20220104
  Receipt Date: 20220104
  Transmission Date: 20220423
  Serious: Yes (Other)
  Sender: FDA-Public Use
  Company Number: None

PATIENT
  Sex: Female

DRUGS (1)
  1. AZITHROMYCIN [Suspect]
     Active Substance: AZITHROMYCIN
     Indication: COVID-19
     Dosage: UNK (INGERI UNA SOLA PASTILLA. ANTES NO TENIA CASI TOS Y LA QUE TENIA ERA SECA. AL TOMAR LA PASTILLA
     Route: 048
     Dates: start: 20211223, end: 20211224

REACTIONS (3)
  - Haemoptysis [Unknown]
  - Cough [Unknown]
  - Chest pain [Unknown]

NARRATIVE: CASE EVENT DATE: 20211224
